FAERS Safety Report 5259010-7 (Version None)
Quarter: 2007Q1

REPORT INFORMATION
  Report Type: 
  Country: None (occurrence: None)
  Receive Date: 20070305
  Receipt Date: 20070221
  Transmission Date: 20070707
  Serious: Yes (Life-Threatening, Hospitalization, Disabling)
  Sender: FDA-Public Use
  Company Number: GXKR2007GB01925

PATIENT
  Age: 46 Year
  Sex: Male

DRUGS (3)
  1. METFORMIN HCL [Suspect]
     Indication: DIABETES MELLITUS NON-INSULIN-DEPENDENT
     Dosage: 56 G,
  2. RAMIPRIL [Suspect]
     Indication: HYPERTENSION
     Dosage: 35 MG,
  3. ALCOHOL (ETHANOL) [Suspect]
     Dosage: 500 ML

REACTIONS (17)
  - ABDOMINAL PAIN LOWER [None]
  - APNOEA [None]
  - BODY TEMPERATURE DECREASED [None]
  - CARDIAC ARREST [None]
  - COMPARTMENT SYNDROME [None]
  - DEHYDRATION [None]
  - DIALYSIS [None]
  - DIARRHOEA [None]
  - LACTIC ACIDOSIS [None]
  - LEG AMPUTATION [None]
  - METABOLIC ACIDOSIS [None]
  - OVERDOSE [None]
  - PALLOR [None]
  - PARTIAL SEIZURES [None]
  - RHABDOMYOLYSIS [None]
  - TACHYPNOEA [None]
  - VOMITING [None]
